FAERS Safety Report 5925135-3 (Version None)
Quarter: 2008Q4

REPORT INFORMATION
  Report Type: 
  Country: None (occurrence: None)
  Receive Date: 20081021
  Receipt Date: 20081015
  Transmission Date: 20090506
  Serious: Yes (Other)
  Sender: FDA-Public Use
  Company Number: US-ROCHE-591837

PATIENT
  Sex: Female
  Weight: 65.3 kg

DRUGS (4)
  1. BONIVA [Suspect]
     Indication: OSTEOPOROSIS
     Route: 048
  2. LIPITOR [Concomitant]
  3. LEVOTHYROXINE SODIUM [Concomitant]
     Indication: HYPOTHYROIDISM
  4. LOPRESSOR [Concomitant]
     Indication: HYPERTENSION

REACTIONS (1)
  - ATRIAL FIBRILLATION [None]
